FAERS Safety Report 26172834 (Version 1)
Quarter: 2025Q4

REPORT INFORMATION
  Report Type: Spontaneous
  Country: US (occurrence: US)
  Receive Date: 20251218
  Receipt Date: 20251218
  Transmission Date: 20260117
  Serious: No
  Sender: LEO PHARM
  Company Number: US-LEO Pharma-384983

PATIENT
  Age: 26 Year
  Sex: Female

DRUGS (1)
  1. ADBRY [Suspect]
     Active Substance: TRALOKINUMAB-LDRM
     Indication: Product used for unknown indication
     Dosage: DISCONTINUED ON AN UNKNOWN DATE
     Route: 058

REACTIONS (6)
  - Skin discolouration [Recovered/Resolved]
  - Injection site urticaria [Recovered/Resolved]
  - Erythema [Recovered/Resolved]
  - Sensitive skin [Recovered/Resolved]
  - Rash [Recovered/Resolved]
  - Skin irritation [Recovered/Resolved]
